FAERS Safety Report 7878870-4 (Version None)
Quarter: 2011Q4

REPORT INFORMATION
  Report Type: 
  Country: None (occurrence: None)
  Receive Date: 20111024
  Receipt Date: 20110713
  Transmission Date: 20120403
  Serious: Yes (Death)
  Sender: FDA-Public Use
  Company Number: AMAG201100157

PATIENT
  Age: 63 Year
  Sex: Female
  Weight: 58 kg

DRUGS (5)
  1. FERAHEME [Suspect]
     Indication: ANAEMIA
     Dosage: 3 ML, (120 MG) SINGLE
     Dates: start: 20110712, end: 20110712
  2. FERAHEME [Suspect]
     Indication: BLADDER TRANSITIONAL CELL CARCINOMA
     Dosage: 3 ML, (120 MG) SINGLE
     Dates: start: 20110712, end: 20110712
  3. ADVAIR HFA [Concomitant]
  4. SYNTHROID [Concomitant]
  5. COUMADIN [Concomitant]

REACTIONS (1)
  - CARDIO-RESPIRATORY ARREST [None]
